FAERS Safety Report 24037596 (Version 1)
Quarter: 2024Q3

REPORT INFORMATION
  Report Type: Spontaneous
  Country: US (occurrence: US)
  Receive Date: 20240702
  Receipt Date: 20240702
  Transmission Date: 20241017
  Serious: Yes (Other)
  Sender: GRAVITI PHARMACEUTICALS
  Company Number: US-GRAVITIPHARMA-GRA-2406-US-LIT-0184

PATIENT
  Age: 28 Year
  Sex: Female

DRUGS (3)
  1. MONTELUKAST SODIUM [Suspect]
     Active Substance: MONTELUKAST SODIUM
     Indication: Anaphylaxis treatment
  2. PREDNISONE [Suspect]
     Active Substance: PREDNISONE
     Indication: Anaphylaxis treatment
  3. OMALIZUMAB [Suspect]
     Active Substance: OMALIZUMAB
     Indication: Anaphylaxis treatment
     Route: 058

REACTIONS (1)
  - Drug ineffective [Unknown]
